FAERS Safety Report 6131323-6 (Version None)
Quarter: 2009Q1

REPORT INFORMATION
  Report Type: 
  Country: None (occurrence: None)
  Receive Date: 20090325
  Receipt Date: 20080317
  Transmission Date: 20090719
  Serious: No
  Sender: FDA-Public Use
  Company Number: US-BRISTOL-MYERS SQUIBB COMPANY-14118327

PATIENT
  Age: 56 Year
  Sex: Male
  Weight: 77 kg

DRUGS (3)
  1. ERBITUX [Suspect]
     Indication: HEAD AND NECK CANCER
     Route: 042
  2. ZESTORETIC [Concomitant]
  3. ALLEGRA [Concomitant]

REACTIONS (2)
  - DERMATITIS ACNEIFORM [None]
  - PRURITUS [None]
